FAERS Safety Report 9504470 (Version 1)
Quarter: 2013Q3

REPORT INFORMATION
  Report Type: Spontaneous
  Country: US (occurrence: US)
  Receive Date: 20130906
  Receipt Date: 20130906
  Transmission Date: 20140515
  Serious: Yes (Other)
  Sender: FDA-Public Use
  Company Number: US-JNJFOC-20130812881

PATIENT
  Sex: Female
  Weight: 55.79 kg

DRUGS (1)
  1. HALDOL DEACANOATE [Suspect]
     Indication: MANIA
     Route: 065

REACTIONS (1)
  - Trismus [Recovering/Resolving]
